FAERS Safety Report 4853312-1 (Version None)
Quarter: 2005Q4

REPORT INFORMATION
  Report Type: 
  Country: None (occurrence: None)
  Receive Date: 20051214
  Receipt Date: 20051027
  Transmission Date: 20060501
  Serious: Yes (Hospitalization)
  Sender: FDA-Public Use
  Company Number: FR-GLAXOSMITHKLINE-B0398630A

PATIENT
  Age: 4 Year
  Sex: Male
  Weight: 18 kg

DRUGS (2)
  1. VENTOLIN [Suspect]
     Indication: ASTHMATIC CRISIS
     Dosage: .6ML SINGLE DOSE
     Route: 042
     Dates: start: 20051027, end: 20051027
  2. SOLU-MEDROL [Concomitant]
     Indication: ASTHMATIC CRISIS
     Route: 042
     Dates: start: 20051027, end: 20051027

REACTIONS (3)
  - HYPERTENSION [None]
  - INCORRECT ROUTE OF DRUG ADMINISTRATION [None]
  - TACHYCARDIA [None]
